FAERS Safety Report 5599689-3 (Version None)
Quarter: 2008Q1

REPORT INFORMATION
  Report Type: 
  Country: None (occurrence: None)
  Receive Date: 20080118
  Receipt Date: 20080118
  Transmission Date: 20080703
  Serious: Yes (Hospitalization)
  Sender: FDA-Public Use
  Company Number: None

PATIENT
  Age: 61 Year
  Sex: Male
  Weight: 60 kg

DRUGS (13)
  1. TRIMETHOPRIM + SULFAMETHOXAZOLE [Suspect]
     Indication: WOUND INFECTION
     Dosage: PO
     Route: 048
  2. ENALAPRIL [Concomitant]
  3. FUROSEMIDE [Concomitant]
  4. ALBUTEROL [Concomitant]
  5. IPRATROPIUM BROMIDE [Concomitant]
  6. DOCUSATE [Concomitant]
  7. SENNA [Concomitant]
  8. AMIODARONE [Concomitant]
  9. ASPIRIN [Concomitant]
  10. TOPROL-XL [Concomitant]
  11. ATORVASTATIN [Concomitant]
  12. FLOMAX [Concomitant]
  13. LANSOPRAZOLE [Concomitant]

REACTIONS (3)
  - BLOOD CREATININE INCREASED [None]
  - BLOOD POTASSIUM INCREASED [None]
  - DIALYSIS [None]
